FAERS Safety Report 4707376-6 (Version None)
Quarter: 2005Q3

REPORT INFORMATION
  Report Type: 
  Country: None (occurrence: None)
  Receive Date: 20050701
  Receipt Date: 20050620
  Transmission Date: 20060218
  Serious: Yes (Hospitalization)
  Sender: FDA-Public Use
  Company Number: S05-FRA-02280-01

PATIENT
  Age: 69 Year
  Sex: Male

DRUGS (5)
  1. CITALOPRAM HYDROBROMIDE [Suspect]
     Dates: start: 20050318, end: 20050421
  2. CIPROFLOXACIN [Suspect]
     Dates: start: 20050318, end: 20050421
  3. PROPRANOLOL [Concomitant]
  4. CAPTEA [Concomitant]
  5. XATRAL (ALFUZOSIN) [Concomitant]

REACTIONS (13)
  - CHRONIC LYMPHOCYTIC LEUKAEMIA [None]
  - DRUG HYPERSENSITIVITY [None]
  - ENANTHEMA [None]
  - FACE OEDEMA [None]
  - GENERALISED ERYTHEMA [None]
  - HYPEREOSINOPHILIC SYNDROME [None]
  - LOCALISED OEDEMA [None]
  - LYMPHADENOPATHY [None]
  - LYMPHOCYTE COUNT INCREASED [None]
  - LYMPHOCYTOSIS [None]
  - RASH MACULO-PAPULAR [None]
  - RASH PUSTULAR [None]
  - TOXIC SKIN ERUPTION [None]
